FAERS Safety Report 9148969 (Version 1)
Quarter: 2013Q1

REPORT INFORMATION
  Report Type: Spontaneous
  Country: US (occurrence: None)
  Receive Date: 20130301
  Receipt Date: 20130301
  Transmission Date: 20140127
  Serious: Yes (Death)
  Sender: FDA-Public Use
  Company Number: FK201300584

PATIENT
  Age: 78 Year
  Sex: Female

DRUGS (11)
  1. SUMATRIPTAN [Suspect]
     Indication: MIGRAINE
     Dosage: AS NEEDED,
  2. CYCLOSPORINE (CICLOSPORIN) [Concomitant]
  3. PREDNISONE (PREDNISONE) [Concomitant]
  4. DILTIAZEM [Concomitant]
  5. ATENOLOL (ATENOLOL) [Concomitant]
  6. ALLOPURINOL(ALLOPURINOL) [Concomitant]
  7. METHIMAZOLE (THIAMAZOLE) [Concomitant]
  8. RISEDRONATE (RISEDRONATE SODIUM) [Concomitant]
  9. TEMAZE PAM ( TEMAZEPAM) [Concomitant]
  10. ALPRAZOLAM (ALPRAZOLAM.) [Concomitant]
  11. FUROSEMIDE (FUROSEMIDE ) [Concomitant]

REACTIONS (7)
  - Renal infarct [None]
  - Blood pressure increased [None]
  - Aspartate aminotransferase increased [None]
  - Alanine aminotransferase increased [None]
  - Blood lactate dehydrogenase increased [None]
  - Hypotension [None]
  - Refusal of treatment by patient [None]
